FAERS Safety Report 10597977 (Version 1)
Quarter: 2014Q4

REPORT INFORMATION
  Report Type: Spontaneous
  Country: US (occurrence: None)
  Receive Date: 20141120
  Receipt Date: 20141120
  Transmission Date: 20150529
  Serious: No
  Sender: FDA-Public Use
  Company Number: None

PATIENT
  Age: 67 Year
  Sex: Male
  Weight: 77.11 kg

DRUGS (1)
  1. CHLORHEXIDINE GLUCONATE. [Suspect]
     Active Substance: CHLORHEXIDINE GLUCONATE
     Indication: SURGERY
     Dosage: WASH BEFORE SURGERY, AT BEDTIME, APPLIED TO A SURFACE, USUALLY THE SKIN

REACTIONS (3)
  - Blister [None]
  - Pain [None]
  - Rash [None]

NARRATIVE: CASE EVENT DATE: 20141001
